FAERS Safety Report 24578484 (Version 2)
Quarter: 2024Q4

REPORT INFORMATION
  Report Type: Spontaneous
  Country: BR (occurrence: BR)
  Receive Date: 20241105
  Receipt Date: 20241115
  Transmission Date: 20250115
  Serious: Yes (Other)
  Sender: NOVO NORDISK
  Company Number: BR-NOVOPROD-1310282

PATIENT
  Age: 45 Year
  Sex: Female
  Weight: 97 kg

DRUGS (3)
  1. OZEMPIC [Suspect]
     Active Substance: SEMAGLUTIDE
     Indication: Weight control
     Dosage: USE IN CLICKS -1 MG
  2. VITAMIN B3 [Concomitant]
     Active Substance: NIACIN
     Dosage: UNK
  3. ASPIRIN [Concomitant]
     Active Substance: ASPIRIN
     Indication: Anticoagulant therapy
     Dosage: UNK

REACTIONS (7)
  - Thrombosis [Unknown]
  - Headache [Unknown]
  - Blood pressure abnormal [Unknown]
  - Vertigo [Unknown]
  - Suspected counterfeit product [Unknown]
  - Off label use [Not Recovered/Not Resolved]
  - Off label use [Unknown]

NARRATIVE: CASE EVENT DATE: 20241020
